FAERS Safety Report 6449692-6 (Version None)
Quarter: 2009Q4

REPORT INFORMATION
  Report Type: 
  Country: None (occurrence: None)
  Receive Date: 20091120
  Receipt Date: 20091029
  Transmission Date: 20100525
  Serious: Yes (Other)
  Sender: FDA-Public Use
  Company Number: US-SANOFI-AVENTIS-2009SA000548

PATIENT

DRUGS (4)
  1. PLAVIX [Suspect]
     Route: 048
  2. WARFARIN SODIUM [Suspect]
  3. MARIJUANA [Suspect]
  4. ACETYLSALICYLIC ACID [Suspect]

REACTIONS (5)
  - CONTUSION [None]
  - EPISTAXIS [None]
  - INTERNATIONAL NORMALISED RATIO INCREASED [None]
  - SYNCOPE [None]
  - UPPER GASTROINTESTINAL HAEMORRHAGE [None]
